FAERS Safety Report 7166825-7 (Version None)
Quarter: 2010Q4

REPORT INFORMATION
  Report Type: 
  Country: None (occurrence: None)
  Receive Date: 20101216
  Receipt Date: 20101212
  Transmission Date: 20110411
  Serious: Yes (Other)
  Sender: FDA-Public Use
  Company Number: US-ROCHE-748073

PATIENT
  Sex: Male

DRUGS (2)
  1. PEGASYS [Suspect]
     Indication: HEPATITIS C
     Route: 065
     Dates: start: 20040101, end: 20050101
  2. RIBAVARIN [Suspect]
     Indication: HEPATITIS C
     Route: 065
     Dates: start: 20040101, end: 20050101

REACTIONS (1)
  - NARCOLEPSY [None]
